FAERS Safety Report 7463547-X (Version None)
Quarter: 2011Q2

REPORT INFORMATION
  Report Type: 
  Country: None (occurrence: None)
  Receive Date: 20110506
  Receipt Date: 20110429
  Transmission Date: 20111010
  Serious: Yes (Hospitalization)
  Sender: FDA-Public Use
  Company Number: PHHO2010DE14216

PATIENT
  Sex: Male
  Weight: 87 kg

DRUGS (3)
  1. GILENYA [Suspect]
     Indication: MULTIPLE SCLEROSIS
     Dosage: UNK
     Route: 048
     Dates: start: 20080710, end: 20100408
  2. GILENYA [Suspect]
     Dosage: 0.5MG
     Route: 048
     Dates: start: 20100409, end: 20100621
  3. GILENYA [Suspect]
     Dosage: 0.5 MG, UNK
     Route: 048
     Dates: start: 20100914

REACTIONS (4)
  - MULTIPLE SCLEROSIS RELAPSE [None]
  - NASOPHARYNGITIS [None]
  - DRUG INEFFECTIVE [None]
  - LYMPHOPENIA [None]
